FAERS Safety Report 5760722-7 (Version None)
Quarter: 2008Q2

REPORT INFORMATION
  Report Type: 
  Country: None (occurrence: None)
  Receive Date: 20080606
  Receipt Date: 20071218
  Transmission Date: 20081010
  Serious: No
  Sender: FDA-Public Use
  Company Number: US-BAYER-200717175NA

PATIENT
  Sex: Female

DRUGS (1)
  1. MIRENA [Suspect]
     Route: 015
     Dates: start: 20071210, end: 20071201

REACTIONS (5)
  - ARTHRALGIA [None]
  - GENITAL DISCOMFORT [None]
  - HOT FLUSH [None]
  - INSOMNIA [None]
  - RASH [None]
